FAERS Safety Report 16055290 (Version 4)
Quarter: 2021Q3

REPORT INFORMATION
  Report Type: Other
  Country: DE (occurrence: DE)
  Receive Date: 20190311
  Receipt Date: 20210910
  Transmission Date: 20211014
  Serious: Yes (Other)
  Sender: FDA-Public Use
  Company Number: DE-ROCHE-2279907

PATIENT

DRUGS (1)
  1. RITUXIMAB. [Suspect]
     Active Substance: RITUXIMAB
     Indication: IMMUNE THROMBOCYTOPENIA
     Route: 065

REACTIONS (39)
  - Myocardial infarction [Unknown]
  - Pyrexia [Unknown]
  - Sinusitis [Unknown]
  - Alanine aminotransferase increased [Unknown]
  - Hypertension [Unknown]
  - Thrombocytopenia [Unknown]
  - Migraine [Unknown]
  - Oropharyngeal pain [Unknown]
  - Cough [Unknown]
  - Anaemia [Unknown]
  - Deep vein thrombosis [Unknown]
  - Insomnia [Unknown]
  - Pneumonia [Unknown]
  - Haemorrhage [Unknown]
  - Nasopharyngitis [Unknown]
  - Diarrhoea [Unknown]
  - Bronchitis [Unknown]
  - Constipation [Unknown]
  - Fatigue [Unknown]
  - Cataract [Unknown]
  - Nausea [Unknown]
  - Vomiting [Unknown]
  - Pain in extremity [Unknown]
  - Headache [Unknown]
  - Dyspnoea [Unknown]
  - Gastroenteritis [Unknown]
  - Upper respiratory tract infection [Unknown]
  - Back pain [Unknown]
  - Arthritis [Unknown]
  - Abdominal pain [Unknown]
  - Influenza [Unknown]
  - Anxiety [Unknown]
  - Epistaxis [Unknown]
  - Arthralgia [Unknown]
  - Aspartate aminotransferase increased [Unknown]
  - Platelet count decreased [Unknown]
  - Dizziness [Unknown]
  - Rash [Unknown]
  - Urinary tract infection [Unknown]
